FAERS Safety Report 9258141 (Version 2)
Quarter: 2013Q2

REPORT INFORMATION
  Report Type: Report from Study
  Country: US (occurrence: US)
  Receive Date: 20130426
  Receipt Date: 20130513
  Transmission Date: 20140414
  Serious: Yes (Other)
  Sender: FDA-Public Use
  Company Number: US-JNJFOC-20130411164

PATIENT
  Age: 83 Year
  Sex: Female

DRUGS (8)
  1. REMICADE [Suspect]
     Indication: RHEUMATOID ARTHRITIS
     Dosage: 2O ML VI
     Route: 042
  2. METHOTREXATE [Concomitant]
     Indication: RHEUMATOID ARTHRITIS
     Route: 048
  3. FOLIC ACID [Concomitant]
     Indication: ARTHRITIS
     Route: 048
  4. FOLIC ACID [Concomitant]
     Indication: PERNICIOUS ANAEMIA
     Route: 048
  5. TYLENOL [Concomitant]
     Indication: PAIN
     Route: 048
  6. RUBINOL [Concomitant]
     Indication: IRRITABLE BOWEL SYNDROME
     Route: 048
  7. VITAMIN B 12 [Concomitant]
     Route: 065
  8. FIBER SUPPLEMENT [Concomitant]
     Indication: IRRITABLE BOWEL SYNDROME
     Dosage: A COUPLE OF TABLE SPOONS
     Route: 048

REACTIONS (9)
  - Glaucoma [Not Recovered/Not Resolved]
  - Diverticulitis [Recovered/Resolved]
  - Abnormal loss of weight [Not Recovered/Not Resolved]
  - Joint dislocation [Not Recovered/Not Resolved]
  - Gastroenteritis viral [Recovered/Resolved]
  - Diarrhoea [Not Recovered/Not Resolved]
  - Fall [Recovered/Resolved]
  - Arthralgia [Not Recovered/Not Resolved]
  - Drug effect decreased [Unknown]
